FAERS Safety Report 15479604 (Version 3)
Quarter: 2018Q4

REPORT INFORMATION
  Report Type: Report from Study
  Country: US (occurrence: US)
  Receive Date: 20181009
  Receipt Date: 20181102
  Transmission Date: 20190205
  Serious: No
  Sender: FDA-Public Use
  Company Number: US-GILEAD-2018-0367057

PATIENT
  Age: 54 Year
  Sex: Female
  Weight: 101.59 kg

DRUGS (32)
  1. FLONASE [Concomitant]
     Active Substance: FLUTICASONE PROPIONATE
  2. LIDODERM [Concomitant]
     Active Substance: LIDOCAINE
  3. AMBRISENTAN [Suspect]
     Active Substance: AMBRISENTAN
     Indication: PRODUCT USED FOR UNKNOWN INDICATION
     Dosage: 5 MG, QD
     Route: 065
     Dates: start: 20181006
  4. ELIQUIS [Concomitant]
     Active Substance: APIXABAN
  5. TESSALON [Concomitant]
     Active Substance: BENZONATATE
  6. MAGNESIUM OXIDE. [Concomitant]
     Active Substance: MAGNESIUM OXIDE
  7. ROXANOL [Concomitant]
     Active Substance: MORPHINE SULFATE
  8. PROTONIX [PANTOPRAZOLE SODIUM SESQUIHYDRATE] [Concomitant]
  9. KLOR-CON [Concomitant]
     Active Substance: POTASSIUM CHLORIDE
  10. ALBUTEROL SULFATE. [Concomitant]
     Active Substance: ALBUTEROL SULFATE
  11. ASPIRIN EC [Concomitant]
     Active Substance: ASPIRIN
  12. PLAQUENIL S [Concomitant]
     Active Substance: HYDROXYCHLOROQUINE SULFATE
  13. XANAX [Concomitant]
     Active Substance: ALPRAZOLAM
  14. MS CONTIN [Concomitant]
     Active Substance: MORPHINE SULFATE
  15. SODIUM CHLORIDE. [Concomitant]
     Active Substance: SODIUM CHLORIDE
  16. ZANAFLEX [Concomitant]
     Active Substance: TIZANIDINE HYDROCHLORIDE
  17. DUONEB [Concomitant]
     Active Substance: ALBUTEROL SULFATE\IPRATROPIUM BROMIDE
  18. LASIX [Concomitant]
     Active Substance: FUROSEMIDE
  19. PHENERGAN [PROMETHAZINE] [Concomitant]
  20. REQUIP [Concomitant]
     Active Substance: ROPINIROLE HYDROCHLORIDE
  21. CARAFATE [Concomitant]
     Active Substance: SUCRALFATE
  22. ADCIRCA [Concomitant]
     Active Substance: TADALAFIL
  23. DELTASONE [PREDNISONE] [Concomitant]
  24. BREO ELLIPTA [Concomitant]
     Active Substance: FLUTICASONE FUROATE\VILANTEROL TRIFENATATE
  25. ATARAX [HYDROXYZINE] [Concomitant]
  26. SINGULAIR [Concomitant]
     Active Substance: MONTELUKAST SODIUM
  27. ZOLOFT [Concomitant]
     Active Substance: SERTRALINE HYDROCHLORIDE
  28. OXYGEN. [Concomitant]
     Active Substance: OXYGEN
  29. CYANOCOBALAMIN. [Concomitant]
     Active Substance: CYANOCOBALAMIN
  30. MOTRIN [Concomitant]
     Active Substance: IBUPROFEN
  31. MIRALAX [Concomitant]
     Active Substance: POLYETHYLENE GLYCOL 3350
  32. SEROQUEL [Concomitant]
     Active Substance: QUETIAPINE FUMARATE

REACTIONS (1)
  - Malaise [Not Recovered/Not Resolved]
